FAERS Safety Report 14321908 (Version 4)
Quarter: 2018Q1

REPORT INFORMATION
  Report Type: Report from Study
  Country: CN (occurrence: CN)
  Receive Date: 20171225
  Receipt Date: 20180228
  Transmission Date: 20180509
  Serious: Yes (Other)
  Sender: FDA-Public Use
  Company Number: CN-ROCHE-1980518

PATIENT
  Sex: Male
  Weight: 60 kg

DRUGS (1)
  1. AVASTIN [Suspect]
     Active Substance: BEVACIZUMAB
     Indication: COLORECTAL CANCER
     Route: 041
     Dates: start: 20170415

REACTIONS (5)
  - Nasopharyngitis [Unknown]
  - Malaise [Unknown]
  - Intestinal obstruction [Unknown]
  - Pyrexia [Unknown]
  - Ascites [Unknown]
